FAERS Safety Report 8494905-2 (Version None)
Quarter: 2012Q3

REPORT INFORMATION
  Report Type: 
  Country: None (occurrence: None)
  Receive Date: 20120709
  Receipt Date: 20120702
  Transmission Date: 20120928
  Serious: Yes (Death, Hospitalization, Other)
  Sender: FDA-Public Use
  Company Number: DE-ASTELLAS-2012US006011

PATIENT
  Sex: Female
  Weight: 67 kg

DRUGS (4)
  1. MCP                                /00041902/ [Concomitant]
     Indication: PRODUCT USED FOR UNKNOWN INDICATION
     Dosage: 30 DROPS, PRN
     Route: 048
     Dates: start: 20110729
  2. ERLOTINIB HYDROCHLORIDE [Suspect]
     Indication: PANCREATIC CARCINOMA METASTATIC
     Dosage: 100 MG, UID/QD
     Route: 048
     Dates: start: 20120330
  3. BRONCHICUM MONO CODEIN [Concomitant]
     Indication: COUGH
     Dosage: 20 DROPS, UID/QD
     Route: 048
     Dates: start: 20110826
  4. GEMZAR [Concomitant]
     Indication: PANCREATIC CARCINOMA METASTATIC
     Dosage: 1000 MG/M2, WEEKLY
     Route: 042
     Dates: start: 20110617

REACTIONS (4)
  - ANAEMIA [None]
  - DISTURBANCE IN ATTENTION [None]
  - THROMBOCYTOPENIA [None]
  - LOBAR PNEUMONIA [None]
